FAERS Safety Report 8191877-5 (Version None)
Quarter: 2012Q1

REPORT INFORMATION
  Report Type: 
  Country: None (occurrence: None)
  Receive Date: 20120307
  Receipt Date: 20120224
  Transmission Date: 20120608
  Serious: Yes (Other)
  Sender: FDA-Public Use
  Company Number: PHHY2011FR115573

PATIENT
  Sex: Female
  Weight: 60 kg

DRUGS (3)
  1. RIVASTIGMINE [Suspect]
     Indication: DEMENTIA ALZHEIMER'S TYPE
     Dosage: 9.5 MG, UNK
     Route: 062
     Dates: start: 20110426, end: 20110830
  2. ASPIRIN [Concomitant]
     Indication: THROMBOSIS PROPHYLAXIS
  3. ESOMEPRAZOLE SODIUM [Concomitant]
     Indication: PROPHYLAXIS

REACTIONS (3)
  - WEIGHT DECREASED [None]
  - DEMENTIA ALZHEIMER'S TYPE [None]
  - BREAST NEOPLASM [None]
